FAERS Safety Report 9893333 (Version 2)
Quarter: 2014Q1

REPORT INFORMATION
  Report Type: Spontaneous
  Country: DE (occurrence: DE)
  Receive Date: 20140213
  Receipt Date: 20140331
  Transmission Date: 20141002
  Serious: Yes (Hospitalization, Disabling)
  Sender: FDA-Public Use
  Company Number: DE-JNJFOC-20140207147

PATIENT
  Age: 82 Year
  Sex: Male
  Weight: 63 kg

DRUGS (4)
  1. XARELTO [Suspect]
     Indication: CEREBROVASCULAR ACCIDENT PROPHYLAXIS
     Route: 048
     Dates: start: 201303, end: 20140123
  2. XARELTO [Suspect]
     Indication: ATRIAL FIBRILLATION
     Route: 048
     Dates: start: 201303, end: 20140123
  3. CANDESARTAN [Concomitant]
     Route: 065
  4. FRAGMIN [Concomitant]
     Route: 058

REACTIONS (3)
  - Carotid arterial embolus [Not Recovered/Not Resolved]
  - Cerebral artery embolism [Not Recovered/Not Resolved]
  - Hemiparesis [Not Recovered/Not Resolved]
